FAERS Safety Report 5115127-9 (Version None)
Quarter: 2006Q3

REPORT INFORMATION
  Report Type: 
  Country: None (occurrence: None)
  Receive Date: 20060925
  Receipt Date: 20060925
  Transmission Date: 20061208
  Serious: Yes (Other)
  Sender: FDA-Public Use
  Company Number: None

PATIENT
  Age: 55 Year
  Sex: Female
  Weight: 95.2554 kg

DRUGS (2)
  1. PAXIL [Suspect]
     Indication: DEPRESSION
     Dosage: 20 MG  DAILY
     Dates: start: 19930901, end: 20010901
  2. 5 HTP    UNKNOWN [Suspect]
     Dosage: 20 MB   DAILY
     Dates: start: 20010901, end: 20031220

REACTIONS (27)
  - ABNORMAL BEHAVIOUR [None]
  - AKATHISIA [None]
  - ALCOHOL USE [None]
  - ALOPECIA [None]
  - CEREBROVASCULAR ACCIDENT [None]
  - CONVULSION [None]
  - CRYING [None]
  - DIZZINESS [None]
  - DRUG WITHDRAWAL SYNDROME [None]
  - DYSARTHRIA [None]
  - EMOTIONAL DISORDER [None]
  - ERYTHEMA [None]
  - FEAR [None]
  - FEELING ABNORMAL [None]
  - GAMBLING [None]
  - HYPOMANIA [None]
  - INSOMNIA [None]
  - MANIA [None]
  - MENTAL DISORDER [None]
  - MENTAL STATUS CHANGES [None]
  - MUSCLE TWITCHING [None]
  - PANIC ATTACK [None]
  - PANIC REACTION [None]
  - PARAESTHESIA [None]
  - PSYCHIATRIC SYMPTOM [None]
  - SEROTONIN SYNDROME [None]
  - TRISMUS [None]
